FAERS Safety Report 10524436 (Version 14)
Quarter: 2016Q4

REPORT INFORMATION
  Report Type: Spontaneous
  Country: US (occurrence: US)
  Receive Date: 20141017
  Receipt Date: 20161229
  Transmission Date: 20170206
  Serious: Yes (Hospitalization, Other)
  Sender: FDA-Public Use
  Company Number: US-SA-2013SA125783

PATIENT
  Age: 74 Year
  Sex: Male

DRUGS (19)
  1. ZOCOR [Concomitant]
     Active Substance: SIMVASTATIN
     Route: 048
  2. COUMADIN [Concomitant]
     Active Substance: WARFARIN SODIUM
  3. PLAVIX [Suspect]
     Active Substance: CLOPIDOGREL BISULFATE
     Indication: STENT PLACEMENT
     Route: 065
     Dates: start: 200911, end: 20101228
  4. ASPIRIN. [Suspect]
     Active Substance: ASPIRIN
     Route: 048
     Dates: start: 20090413, end: 201012
  5. NORVASC [Concomitant]
     Active Substance: AMLODIPINE BESYLATE
  6. LOTENSIN [Concomitant]
     Active Substance: BENAZEPRIL HYDROCHLORIDE
  7. PROTONIX [Concomitant]
     Active Substance: PANTOPRAZOLE SODIUM
  8. COREG [Concomitant]
     Active Substance: CARVEDILOL
     Route: 048
  9. JANUVIA [Concomitant]
     Active Substance: SITAGLIPTIN PHOSPHATE
  10. ASPIRIN. [Suspect]
     Active Substance: ASPIRIN
     Route: 048
  11. GLUCOTROL [Concomitant]
     Active Substance: GLIPIZIDE
  12. GLIPIZIDE. [Concomitant]
     Active Substance: GLIPIZIDE
  13. GLUCOTROL [Concomitant]
     Active Substance: GLIPIZIDE
     Route: 048
  14. BENAZEPRIL [Concomitant]
     Active Substance: BENAZEPRIL HYDROCHLORIDE
     Route: 048
  15. METFORMIN [Concomitant]
     Active Substance: METFORMIN HYDROCHLORIDE
  16. AVAPRO [Concomitant]
     Active Substance: IRBESARTAN
  17. AVANDIA [Concomitant]
     Active Substance: ROSIGLITAZONE MALEATE
  18. NORVASC [Concomitant]
     Active Substance: AMLODIPINE BESYLATE
     Route: 048
  19. ADALAT [Concomitant]
     Active Substance: NIFEDIPINE

REACTIONS (9)
  - Upper gastrointestinal haemorrhage [Not Recovered/Not Resolved]
  - Hypotension [Unknown]
  - Chronic gastritis [Unknown]
  - Duodenal ulcer [Unknown]
  - Multiple injuries [Unknown]
  - Melaena [Not Recovered/Not Resolved]
  - Haemorrhagic anaemia [Unknown]
  - Bradycardia [Unknown]
  - Dizziness [Not Recovered/Not Resolved]

NARRATIVE: CASE EVENT DATE: 2010
